FAERS Safety Report 24875548 (Version 3)
Quarter: 2025Q2

REPORT INFORMATION
  Report Type: Report from Study
  Country: US (occurrence: US)
  Receive Date: 20250122
  Receipt Date: 20250623
  Transmission Date: 20250716
  Serious: No
  Sender: SUNOVION
  Company Number: US-SUMITOMO PHARMA SWITZERLAND GMBH-2025SPA000261

PATIENT

DRUGS (2)
  1. ORGOVYX [Suspect]
     Active Substance: RELUGOLIX
     Indication: Prostate cancer
     Dosage: 120 MG, QD
     Route: 048
     Dates: start: 202410
  2. ORGOVYX [Suspect]
     Active Substance: RELUGOLIX
     Dosage: 120 MG, QD (WITH BIOLOGICS)
     Route: 048
     Dates: start: 20250111

REACTIONS (9)
  - Glycosylated haemoglobin increased [Unknown]
  - Ventricular extrasystoles [Unknown]
  - Feeling abnormal [Unknown]
  - Mood swings [Unknown]
  - Blood bilirubin increased [Unknown]
  - Asthenia [Unknown]
  - Hot flush [Unknown]
  - Haemoglobin decreased [Unknown]
  - Incorrect dose administered [Unknown]
